FAERS Safety Report 13930713 (Version 1)
Quarter: 2017Q3

REPORT INFORMATION
  Report Type: Report from Study
  Country: KR (occurrence: KR)
  Receive Date: 20170901
  Receipt Date: 20170901
  Transmission Date: 20171127
  Serious: Yes (Hospitalization)
  Sender: FDA-Public Use
  Company Number: KR-TAKEDA-2017TUS018251

PATIENT
  Age: 65 Year
  Sex: Female
  Weight: 52.5 kg

DRUGS (11)
  1. VALPROATE [Concomitant]
     Active Substance: VALPROIC ACID
     Indication: MAJOR DEPRESSION
     Dosage: 300 MG, UNK
     Route: 048
     Dates: start: 20161114
  2. ZOLPIDEM [Concomitant]
     Active Substance: ZOLPIDEM\ZOLPIDEM TARTRATE
     Dosage: 10 MG, UNK
     Route: 048
     Dates: start: 20170102
  3. VORTIOXETINE [Suspect]
     Active Substance: VORTIOXETINE
     Indication: MAJOR DEPRESSION
     Dosage: 5 MG, QD
     Route: 048
     Dates: start: 20161010
  4. ALPRAZOLAM. [Concomitant]
     Active Substance: ALPRAZOLAM
     Indication: MAJOR DEPRESSION
     Dosage: 0.4 MG, UNK
     Route: 048
     Dates: start: 20141201, end: 20170312
  5. TRAZODONE [Concomitant]
     Active Substance: TRAZODONE HYDROCHLORIDE
     Indication: MAJOR DEPRESSION
     Dosage: 50 MG, UNK
     Route: 048
     Dates: start: 20141201
  6. ZOLPIDEM [Concomitant]
     Active Substance: ZOLPIDEM\ZOLPIDEM TARTRATE
     Indication: MAJOR DEPRESSION
     Dosage: 5 MG, UNK
     Route: 048
     Dates: start: 20141201, end: 20161204
  7. ZOLPIDEM [Concomitant]
     Active Substance: ZOLPIDEM\ZOLPIDEM TARTRATE
     Dosage: 6.25 MG, UNK
     Route: 048
     Dates: start: 20161205, end: 20170101
  8. AMISULPRIDE [Concomitant]
     Active Substance: AMISULPRIDE
     Indication: MAJOR DEPRESSION
     Dosage: 100 MG, UNK
     Route: 048
     Dates: start: 20161010, end: 20161113
  9. ALPRAZOLAM. [Concomitant]
     Active Substance: ALPRAZOLAM
     Dosage: 0.2 MG, UNK
     Route: 048
     Dates: start: 20141208, end: 20170409
  10. BLONANSERIN [Concomitant]
     Active Substance: BLONANSERIN
     Indication: MAJOR DEPRESSION
     Dosage: 1 MG, UNK
     Route: 048
     Dates: start: 20160912, end: 20161009
  11. SERTRALINE [Concomitant]
     Active Substance: SERTRALINE HYDROCHLORIDE
     Indication: MAJOR DEPRESSION
     Dosage: 100 MG, UNK
     Route: 048
     Dates: start: 20160818, end: 20161009

REACTIONS (2)
  - Chronic obstructive pulmonary disease [Recovered/Resolved]
  - Pneumonia [Recovered/Resolved]

NARRATIVE: CASE EVENT DATE: 20170220
